FAERS Safety Report 4550735-5 (Version None)
Quarter: 2004Q4

REPORT INFORMATION
  Report Type: 
  Country: None (occurrence: None)
  Receive Date: 20041217
  Receipt Date: 20040922
  Transmission Date: 20050328
  Serious: No
  Sender: FDA-Public Use
  Company Number: 2004-BP-08607BP

PATIENT
  Age: 75 Year
  Sex: Female
  Weight: 59.4 kg

DRUGS (11)
  1. SPIRIVA [Suspect]
     Indication: CHRONIC OBSTRUCTIVE AIRWAYS DISEASE
     Dosage: 18 MCG *18 MCG) IH
     Route: 055
     Dates: end: 20040924
  2. ADVIAR (SERETIDE MITE) [Concomitant]
  3. ALBUTEROL [Concomitant]
  4. SINGULAIR (MONTELEUKAST ) [Concomitant]
  5. FOSAMAX (ALENDRPMATE SPDOI,_ [Concomitant]
  6. ASPIRIN [Concomitant]
  7. XOPENEX [Concomitant]
  8. PAXIL [Concomitant]
  9. TRAZODONE HCL [Concomitant]
  10. XANAX [Concomitant]
  11. SPIRIVA [Suspect]

REACTIONS (6)
  - ASTHMA [None]
  - CONSTIPATION [None]
  - DRY MOUTH [None]
  - EYE PAIN [None]
  - EYELID OEDEMA [None]
  - VISUAL ACUITY REDUCED [None]
